FAERS Safety Report 8027303-6 (Version None)
Quarter: 2012Q1

REPORT INFORMATION
  Report Type: 
  Country: None (occurrence: None)
  Receive Date: 20120105
  Receipt Date: 20120105
  Transmission Date: 20120608
  Serious: Yes (Hospitalization)
  Sender: FDA-Public Use
  Company Number: None

PATIENT
  Age: 26 Year
  Sex: Male
  Weight: 86.4 kg

DRUGS (4)
  1. RECLAST [Suspect]
     Indication: SPINAL CORD INJURY
     Dosage: 5 MG 2/YR INTRAVENOUS INFUSION
     Route: 042
     Dates: start: 20110630
  2. RECLAST [Suspect]
     Indication: SPINAL CORD INJURY
     Dosage: 5 MG 2/YR INTRAVENOUS INFUSION
     Route: 042
     Dates: start: 20101229
  3. VITAMIN D [Concomitant]
  4. CALCIUM (TUMS) [Concomitant]

REACTIONS (4)
  - HEADACHE [None]
  - PYREXIA [None]
  - CHEST PAIN [None]
  - BLOOD PRESSURE INCREASED [None]
